FAERS Safety Report 20216301 (Version 2)
Quarter: 2022Q1

REPORT INFORMATION
  Report Type: Spontaneous
  Country: FR (occurrence: FR)
  Receive Date: 20211222
  Receipt Date: 20220106
  Transmission Date: 20220423
  Serious: Yes (Other)
  Sender: FDA-Public Use
  Company Number: FR-AUROBINDO-AUR-APL-2021-043998

PATIENT
  Age: 27 Year
  Sex: Male

DRUGS (6)
  1. TRAMADOL [Suspect]
     Active Substance: TRAMADOL
     Indication: Pain
     Dosage: UNK
     Route: 048
     Dates: start: 202109
  2. TRAMADOL [Suspect]
     Active Substance: TRAMADOL
     Dosage: UNK
     Route: 048
     Dates: start: 202108, end: 202109
  3. NEFOPAM [Suspect]
     Active Substance: NEFOPAM
     Indication: Pain
     Dosage: 60 MG/6 ML, FOUR TIMES A DAY
     Route: 065
     Dates: start: 202109
  4. NEFOPAM [Suspect]
     Active Substance: NEFOPAM
     Dosage: UNK~60 MG/6 ML, FOUR TIMES A DAY
     Route: 048
     Dates: start: 2021
  5. GABAPENTIN [Suspect]
     Active Substance: GABAPENTIN
     Indication: Neuralgia
     Dosage: 600 MILLIGRAM, ONCE A DAY (200MG THREE TIMES DAILY)
     Route: 048
     Dates: start: 20210907, end: 20210909
  6. GABAPENTIN [Suspect]
     Active Substance: GABAPENTIN
     Indication: Ligament sprain

REACTIONS (6)
  - Angina pectoris [Recovered/Resolved]
  - Tachycardia [Recovered/Resolved]
  - Tremor [Recovering/Resolving]
  - Hyperhidrosis [Recovering/Resolving]
  - Pain in extremity [Recovered/Resolved]
  - Intentional dose omission [Unknown]

NARRATIVE: CASE EVENT DATE: 20210908
